FAERS Safety Report 17458921 (Version 1)
Quarter: 2020Q1

REPORT INFORMATION
  Report Type: Spontaneous
  Country: US (occurrence: US)
  Receive Date: 20200225
  Receipt Date: 20200225
  Transmission Date: 20200409
  Serious: No
  Sender: FDA-Public Use
  Company Number: US-IGSA-SR10008913

PATIENT
  Age: 68 Year
  Sex: Female
  Weight: 46 kg

DRUGS (12)
  1. INCRUSE ELLIPTA [Concomitant]
     Active Substance: UMECLIDINIUM BROMIDE
  2. LEVOTHYROXINE                      /00068002/ [Concomitant]
     Active Substance: LEVOTHYROXINE
  3. PREDNISONE                         /00044702/ [Concomitant]
     Active Substance: PREDNISONE
  4. XANAX [Concomitant]
     Active Substance: ALPRAZOLAM
  5. BUDESONIDE. [Concomitant]
     Active Substance: BUDESONIDE
  6. PULMICORT TURBUHALER [Concomitant]
     Active Substance: BUDESONIDE
  7. NICORETTE [Concomitant]
     Active Substance: NICOTINE
  8. PROLASTIN-C LIQUID [Suspect]
     Active Substance: .ALPHA.1-PROTEINASE INHIBITOR HUMAN
     Dosage: 2760 MG, Q.WK.
     Route: 042
     Dates: start: 20180928
  9. ASPIRIN                            /00002701/ [Concomitant]
     Active Substance: ASPIRIN
  10. ATORVASTATIN                       /01326102/ [Concomitant]
     Active Substance: ATORVASTATIN
  11. CITALOPRAM [Concomitant]
     Active Substance: CITALOPRAM HYDROBROMIDE
  12. PROLASTIN-C LIQUID [Suspect]
     Active Substance: .ALPHA.1-PROTEINASE INHIBITOR HUMAN
     Indication: ALPHA-1 ANTI-TRYPSIN DEFICIENCY
     Dosage: 2760 MG, Q.WK.
     Route: 042
     Dates: start: 20190806, end: 20190806

REACTIONS (5)
  - Oxygen saturation decreased [Unknown]
  - Malaise [Unknown]
  - Headache [Unknown]
  - Blood pressure increased [Unknown]
  - Dyspnoea [None]

NARRATIVE: CASE EVENT DATE: 20190806
